FAERS Safety Report 15409299 (Version 1)
Quarter: 2018Q4

REPORT INFORMATION
  Report Type: Report from Study
  Country: US (occurrence: US)
  Receive Date: 20180920
  Receipt Date: 20180920
  Transmission Date: 20190204
  Serious: Yes (Hospitalization)
  Sender: FDA-Public Use
  Company Number: US-BAYER-2018-173404

PATIENT
  Sex: Male
  Weight: 87.9 kg

DRUGS (1)
  1. DHODH INHIBITOR (BAY2402234) [Suspect]
     Active Substance: BAY-2402234
     Indication: MYELODYSPLASTIC SYNDROME
     Dosage: 2 DF, QD
     Route: 048
     Dates: start: 20180828

REACTIONS (1)
  - Tumour lysis syndrome [Not Recovered/Not Resolved]

NARRATIVE: CASE EVENT DATE: 20180913
